FAERS Safety Report 7236556-3 (Version None)
Quarter: 2011Q1

REPORT INFORMATION
  Report Type: 
  Country: None (occurrence: None)
  Receive Date: 20110120
  Receipt Date: 20110107
  Transmission Date: 20110831
  Serious: Yes (Hospitalization, Other)
  Sender: FDA-Public Use
  Company Number: US-EISAI INC-E2020-08339-SOL-US

PATIENT
  Sex: Female

DRUGS (10)
  1. INTERFERON BETA-1B [Suspect]
     Indication: MULTIPLE SCLEROSIS
     Dosage: 8 MIU
     Route: 058
     Dates: start: 20100722
  2. AMBIEN [Concomitant]
  3. OXYBUTYNIN [Concomitant]
  4. PROVIGIL [Concomitant]
  5. NAMENDA [Concomitant]
  6. ARICEPT [Suspect]
     Dosage: UNKNOWN
     Route: 048
     Dates: start: 20101101, end: 20101128
  7. ARICEPT [Suspect]
     Dosage: SWALLOWED ALL HER PILLS
     Route: 048
     Dates: start: 20101129
  8. ALEVE [Concomitant]
  9. CELEXA [Concomitant]
  10. CARDIAC THERAPY [Concomitant]
     Dates: end: 20101129

REACTIONS (2)
  - SUICIDE ATTEMPT [None]
  - DEPRESSION [None]
